FAERS Safety Report 5913468-6 (Version None)
Quarter: 2008Q4

REPORT INFORMATION
  Report Type: 
  Country: None (occurrence: None)
  Receive Date: 20081008
  Receipt Date: 20081008
  Transmission Date: 20090506
  Serious: Yes (Hospitalization, Other)
  Sender: FDA-Public Use
  Company Number: None

PATIENT
  Age: 57 Year
  Sex: Female
  Weight: 97.5 kg

DRUGS (12)
  1. GABAPENTIN [Suspect]
     Indication: HERPES ZOSTER
     Dosage: 100MG ONCE PO
     Route: 048
     Dates: start: 20071006, end: 20071006
  2. GABAPENTIN [Suspect]
     Indication: NEURALGIA
     Dosage: 100MG ONCE PO
     Route: 048
     Dates: start: 20071006, end: 20071006
  3. METOPROLOL TARTRATE [Concomitant]
  4. PREDNISONE [Concomitant]
  5. SIMVASTATIN [Concomitant]
  6. ASPIRIN [Concomitant]
  7. INSULIN [Suspect]
  8. CYCLOBENZAPRINE HCL [Concomitant]
  9. LISINOPRIL [Concomitant]
  10. ALBUTEROL [Concomitant]
  11. DARVOCET-N 100 [Concomitant]
  12. AMLODIPINE/BENZAPRIL [Concomitant]

REACTIONS (12)
  - AZOTAEMIA [None]
  - BLOOD GLUCOSE DECREASED [None]
  - CAROTID ARTERIOSCLEROSIS [None]
  - CEREBRAL CALCIFICATION [None]
  - CEREBRAL ISCHAEMIA [None]
  - DYSKINESIA [None]
  - HYPERSOMNIA [None]
  - MUSCLE CONTRACTIONS INVOLUNTARY [None]
  - MYOCLONUS [None]
  - RENAL FAILURE ACUTE [None]
  - TONGUE BITING [None]
  - TREMOR [None]
